FAERS Safety Report 4383550-6 (Version None)
Quarter: 2004Q2

REPORT INFORMATION
  Report Type: 
  Country: None (occurrence: None)
  Receive Date: 20040602
  Receipt Date: 20031001
  Transmission Date: 20050107
  Serious: Yes (Other)
  Sender: FDA-Public Use
  Company Number: US-JNJFOC-20040301665

PATIENT
  Age: 76 Year
  Sex: Female
  Weight: 81.6475 kg

DRUGS (5)
  1. PROPULSID [Suspect]
     Indication: GASTRIC DISORDER
     Dosage: 10 MG
     Dates: start: 19980413, end: 19990701
  2. CIPRO [Concomitant]
  3. CARDIAZEM (DILTIAZEM HYDROCHLORIDE) [Concomitant]
  4. LANOXIN [Concomitant]
  5. LASIX [Concomitant]

REACTIONS (6)
  - AUTONOMIC NEUROPATHY [None]
  - ELECTROCARDIOGRAM QT CORRECTED INTERVAL PROLONGED [None]
  - HEART INJURY [None]
  - HEART RATE IRREGULAR [None]
  - PALPITATIONS [None]
  - VAGUS NERVE DISORDER [None]
